FAERS Safety Report 8599320-9 (Version None)
Quarter: 2012Q3

REPORT INFORMATION
  Report Type: 
  Country: None (occurrence: None)
  Receive Date: 20120816
  Receipt Date: 20120810
  Transmission Date: 20120928
  Serious: Yes (Other)
  Sender: FDA-Public Use
  Company Number: JP-JNJFOC-20120203328

PATIENT
  Sex: Male
  Weight: 72 kg

DRUGS (7)
  1. CLOBETASOL PROPIONATE [Concomitant]
     Route: 061
     Dates: end: 20120323
  2. USTEKINUMAB [Suspect]
     Route: 058
     Dates: start: 20111129
  3. WHITE PETROLEUM [Concomitant]
     Route: 061
     Dates: end: 20120323
  4. USTEKINUMAB [Suspect]
     Indication: PSORIATIC ARTHROPATHY
     Route: 058
     Dates: start: 20111101
  5. MAXACALCITOL [Concomitant]
     Route: 061
     Dates: end: 20120323
  6. LORATADINE [Concomitant]
     Route: 048
     Dates: end: 20120323
  7. DIFLORASONE DIACETATE [Concomitant]
     Route: 061
     Dates: end: 20120323

REACTIONS (1)
  - COLON CANCER [None]
